FAERS Safety Report 16576602 (Version 1)
Quarter: 2019Q3

REPORT INFORMATION
  Report Type: Spontaneous
  Country: US (occurrence: US)
  Receive Date: 20190716
  Receipt Date: 20190716
  Transmission Date: 20191004
  Serious: No
  Sender: FDA-Public Use
  Company Number: US-JNJFOC-20190720208

PATIENT
  Sex: Female

DRUGS (2)
  1. MENS ROGAINE EXTRA STRENGTH [Suspect]
     Active Substance: MINOXIDIL
     Dosage: STARTED USING IT TWO TIMES A DAY BUT NOW HAVE SWITCHED TO ONE TIME A DAY
     Route: 061
  2. MENS ROGAINE EXTRA STRENGTH [Suspect]
     Active Substance: MINOXIDIL
     Indication: PRODUCT USED FOR UNKNOWN INDICATION
     Dosage: STARTED USING IT TWO TIMES A DAY BUT NOW HAVE SWITCHED TO ONE TIME A DAY.
     Route: 061

REACTIONS (3)
  - Off label use [Unknown]
  - Product use issue [Unknown]
  - Hair growth abnormal [Unknown]
